FAERS Safety Report 22167782 (Version 1)
Quarter: 2023Q2

REPORT INFORMATION
  Report Type: Spontaneous
  Country: NL (occurrence: NL)
  Receive Date: 20230403
  Receipt Date: 20230403
  Transmission Date: 20230721
  Serious: Yes (Hospitalization)
  Sender: FDA-Public Use
  Company Number: None

PATIENT
  Sex: Female
  Weight: 55 kg

DRUGS (1)
  1. AMOXICILLIN [Suspect]
     Active Substance: AMOXICILLIN
     Indication: Tonsillitis streptococcal
     Dosage: 2250 MILLIGRAM DAILY; 750MG EVERY 8 HOURS FOR 10 DAYS, STRENGTH: 750MG / BRAND NAME NOT SPECIFIED, D
     Route: 065
     Dates: start: 20220115, end: 20220116

REACTIONS (3)
  - Rash [Recovered/Resolved]
  - Rash erythematous [Recovered/Resolved]
  - Jarisch-Herxheimer reaction [Recovered/Resolved]
